FAERS Safety Report 23241241 (Version 15)
Quarter: 2024Q4

REPORT INFORMATION
  Report Type: Spontaneous
  Country: US (occurrence: US)
  Receive Date: 20231129
  Receipt Date: 20241226
  Transmission Date: 20250114
  Serious: Yes (Other)
  Sender: PFIZER
  Company Number: US-PFIZER INC-PV202300067106

PATIENT
  Age: 73 Year
  Sex: Female
  Weight: 78.912 kg

DRUGS (1)
  1. PREMPRO [Suspect]
     Active Substance: ESTROGENS, CONJUGATED\MEDROXYPROGESTERONE ACETATE
     Dosage: 1 DF, DAILY
     Route: 048

REACTIONS (21)
  - Mental impairment [Unknown]
  - Foot operation [Unknown]
  - Product prescribing error [Unknown]
  - Feeling abnormal [Unknown]
  - Stress [Unknown]
  - Skin erosion [Unknown]
  - Pain in extremity [Unknown]
  - Glycosylated haemoglobin increased [Unknown]
  - Gait disturbance [Unknown]
  - Depressed mood [Unknown]
  - Feeding disorder [Unknown]
  - Chest discomfort [Unknown]
  - Tooth extraction [Unknown]
  - Dental implantation [Unknown]
  - Blood glucose increased [Unknown]
  - Tooth fracture [Unknown]
  - Toothache [Unknown]
  - Arthropathy [Unknown]
  - Accident [Unknown]
  - Laryngitis [Recovering/Resolving]
  - Oropharyngeal pain [Unknown]

NARRATIVE: CASE EVENT DATE: 20241201
